FAERS Safety Report 7822803-3 (Version None)
Quarter: 2011Q4

REPORT INFORMATION
  Report Type: 
  Country: None (occurrence: None)
  Receive Date: 20111018
  Receipt Date: 20110617
  Transmission Date: 20120403
  Serious: No
  Sender: FDA-Public Use
  Company Number: US-ASTRAZENECA-2011SE37030

PATIENT
  Age: 50 Year
  Sex: Female

DRUGS (8)
  1. SYMBICORT [Suspect]
     Dosage: 160/4.5 ONE PUFF AT NIGHT
     Route: 055
     Dates: start: 20100601
  2. SYMBICORT [Suspect]
     Indication: ASTHMA
     Dosage: 160/4.5 ONE PUFF AS REQUIRED
     Route: 055
     Dates: start: 20100601
  3. SYMBICORT [Suspect]
     Dosage: 160/4.5 TWO PUFFS BID
     Route: 055
     Dates: start: 20100601
  4. SYMBICORT [Suspect]
     Dosage: EVERY OTHER DAY
     Route: 055
     Dates: start: 20100601
  5. SYMBICORT [Suspect]
     Dosage: 160/4.5 TWO PUFFS BID
     Route: 055
     Dates: start: 20100601
  6. SYMBICORT [Suspect]
     Dosage: EVERY OTHER DAY
     Route: 055
     Dates: start: 20100601
  7. SYMBICORT [Suspect]
     Indication: CHRONIC OBSTRUCTIVE PULMONARY DISEASE
     Dosage: 160/4.5 ONE PUFF AS REQUIRED
     Route: 055
     Dates: start: 20100601
  8. SYMBICORT [Suspect]
     Dosage: 160/4.5 ONE PUFF AT NIGHT
     Route: 055
     Dates: start: 20100601

REACTIONS (5)
  - INAPPROPRIATE SCHEDULE OF DRUG ADMINISTRATION [None]
  - INCORRECT DOSE ADMINISTERED [None]
  - DYSPNOEA [None]
  - COUGH [None]
  - DYSPHONIA [None]
